FAERS Safety Report 21545619 (Version 1)
Quarter: 2022Q4

REPORT INFORMATION
  Report Type: Spontaneous
  Country: US (occurrence: US)
  Receive Date: 20221103
  Receipt Date: 20221103
  Transmission Date: 20230112
  Serious: Yes (Other)
  Sender: FDA-Public Use
  Company Number: US-SA-SAC20221101000293

PATIENT
  Age: 41 Year

DRUGS (1)
  1. ZANTAC [Suspect]
     Active Substance: RANITIDINE HYDROCHLORIDE
     Dosage: 75 MG; FREQ; OTHER
     Dates: start: 201501, end: 201701

REACTIONS (1)
  - Gastric cancer stage I [Unknown]

NARRATIVE: CASE EVENT DATE: 20170801
